FAERS Safety Report 9552909 (Version 1)
Quarter: 2013Q2

REPORT INFORMATION
  Report Type: Spontaneous
  Country: US (occurrence: None)
  Receive Date: 20130517
  Receipt Date: 20130517
  Transmission Date: 20140414
  Serious: Yes (Disabling)
  Sender: FDA-Public Use
  Company Number: 2012PL000200

PATIENT
  Sex: Male

DRUGS (2)
  1. IMURAN [Suspect]
     Indication: COLITIS ULCERATIVE
     Dates: start: 2005
  2. REMICADE [Suspect]
     Indication: COLITIS ULCERATIVE
     Dates: start: 2005

REACTIONS (1)
  - Chronic myeloid leukaemia [None]
